FAERS Safety Report 9110875 (Version 1)
Quarter: 2013Q1

REPORT INFORMATION
  Report Type: Spontaneous
  Country: US (occurrence: US)
  Receive Date: 20130219
  Receipt Date: 20130219
  Transmission Date: 20140127
  Serious: No
  Sender: FDA-Public Use
  Company Number: US-BRISTOL-MYERS SQUIBB COMPANY-16756462

PATIENT
  Age: 63 Year
  Sex: Female
  Weight: 52.15 kg

DRUGS (3)
  1. ORENCIA [Suspect]
     Indication: RHEUMATOID ARTHRITIS
     Dosage: LAST INF ON 08JUN2012,07SEP12, Q4-5 WEEKS?DOSES:2 VIALS
     Route: 042
     Dates: start: 201204
  2. PREDNISONE [Concomitant]
  3. FOSAMAX [Concomitant]

REACTIONS (4)
  - Pain [Unknown]
  - Feeling abnormal [Unknown]
  - Osteoporosis [Unknown]
  - Rheumatoid arthritis [Unknown]
